FAERS Safety Report 8840907 (Version 4)
Quarter: 2013Q3

REPORT INFORMATION
  Report Type: Spontaneous
  Country: US (occurrence: US)
  Receive Date: 20121015
  Receipt Date: 20130725
  Transmission Date: 20140515
  Serious: Yes (Hospitalization, Other)
  Sender: FDA-Public Use
  Company Number: US-009507513-1112USA01773

PATIENT
  Sex: Female

DRUGS (9)
  1. FOSAMAX [Suspect]
     Indication: OSTEOPOROSIS
     Dosage: 70 MG, QW
     Route: 048
     Dates: start: 20080710, end: 20091117
  2. FOSAMAX [Suspect]
     Dosage: 70 MG, QW
     Route: 048
     Dates: start: 20100222
  3. FOSAMAX [Suspect]
     Dosage: 70 MG, QW
     Route: 048
     Dates: start: 20080229, end: 20080619
  4. FOSAMAX [Suspect]
     Dosage: 70 MG, QW
     Route: 048
     Dates: start: 20091215
  5. FOSAMAX [Suspect]
     Dosage: 70 MG, QW
     Route: 048
     Dates: start: 20040119, end: 20080201
  6. FOSAMAX [Suspect]
     Dosage: 70 MG, QW
     Route: 048
     Dates: end: 20100318
  7. FOSAMAX [Suspect]
     Dosage: 10 MG, QAM
     Route: 048
  8. CALCIUM (UNSPECIFIED) [Concomitant]
     Indication: OSTEOPOROSIS
  9. VITAMIN D (UNSPECIFIED) [Concomitant]
     Indication: OSTEOPOROSIS

REACTIONS (40)
  - Femur fracture [Recovered/Resolved]
  - Open reduction of fracture [Recovered/Resolved]
  - Spinal compression fracture [Unknown]
  - Gallbladder disorder [Unknown]
  - Invasive ductal breast carcinoma [Unknown]
  - Low turnover osteopathy [Unknown]
  - Road traffic accident [Unknown]
  - Wrist fracture [Unknown]
  - Periarthritis [Unknown]
  - Neurodermatitis [Unknown]
  - Varicose vein [Unknown]
  - Bronchitis [Unknown]
  - Non-alcoholic steatohepatitis [Unknown]
  - Pneumonia [Unknown]
  - Asthma [Unknown]
  - Sinus tachycardia [Unknown]
  - Hepatic steatosis [Unknown]
  - Oedema [Unknown]
  - Left ventricular hypertrophy [Unknown]
  - Left ventricular dysfunction [Unknown]
  - Foot fracture [Recovering/Resolving]
  - Blood cholesterol increased [Unknown]
  - Muscle disorder [Unknown]
  - Cellulitis [Unknown]
  - Tenosynovitis stenosans [Unknown]
  - Urinary tract infection [Unknown]
  - Muscle strain [Unknown]
  - Temporomandibular joint syndrome [Unknown]
  - Urinary tract infection [Unknown]
  - Decreased appetite [Unknown]
  - Breath sounds abnormal [Unknown]
  - Urinary tract infection [Unknown]
  - Osteoarthritis [Unknown]
  - Nocturia [Unknown]
  - Pyrexia [Unknown]
  - Constipation [Unknown]
  - Gastrooesophageal reflux disease [Unknown]
  - Abdominal pain [Unknown]
  - Back pain [Unknown]
  - Back pain [Unknown]
